FAERS Safety Report 5001661-9 (Version None)
Quarter: 2006Q2

REPORT INFORMATION
  Report Type: 
  Country: None (occurrence: None)
  Receive Date: 20060515
  Receipt Date: 20060503
  Transmission Date: 20061013
  Serious: Yes (Disabling, Other)
  Sender: FDA-Public Use
  Company Number: PHEH2006US05874

PATIENT
  Sex: Male
  Weight: 63.492 kg

DRUGS (1)
  1. EXJADE [Suspect]
     Dosage: 30 MG/KG, QD

REACTIONS (4)
  - NEUROPATHY PERIPHERAL [None]
  - PARAESTHESIA [None]
  - RASH [None]
  - SWELLING [None]
